FAERS Safety Report 11039312 (Version 4)
Quarter: 2016Q4

REPORT INFORMATION
  Report Type: Spontaneous
  Country: US (occurrence: US)
  Receive Date: 20150416
  Receipt Date: 20161111
  Transmission Date: 20170206
  Serious: No
  Sender: FDA-Public Use
  Company Number: US-GLAXOSMITHKLINE-US2015051275

PATIENT
  Age: 63 Year
  Sex: Female

DRUGS (2)
  1. TANZEUM [Suspect]
     Active Substance: ALBIGLUTIDE
     Dosage: 30 MG, WE
     Dates: start: 201604
  2. TANZEUM [Suspect]
     Active Substance: ALBIGLUTIDE
     Indication: TYPE 2 DIABETES MELLITUS
     Dosage: UNK
     Dates: start: 20150313

REACTIONS (8)
  - Abdominal pain upper [Unknown]
  - Device leakage [Unknown]
  - Product preparation error [Unknown]
  - Pruritus [Not Recovered/Not Resolved]
  - Accidental exposure to product [Unknown]
  - Device use error [Unknown]
  - Wrong technique in product usage process [Unknown]
  - Underdose [Unknown]

NARRATIVE: CASE EVENT DATE: 20150313
